FAERS Safety Report 9799079 (Version 1)
Quarter: 2014Q1

REPORT INFORMATION
  Report Type: Spontaneous
  Country: FR (occurrence: None)
  Receive Date: 20140102
  Receipt Date: 20140102
  Transmission Date: 20141002
  Serious: Yes (Hospitalization)
  Sender: FDA-Public Use
  Company Number: SYM-2013-14379

PATIENT
  Age: 87 Year
  Sex: Female

DRUGS (4)
  1. FLAGYL (METRONIDAZOLE) (METRONIDAZOLE) [Suspect]
     Indication: PANCREATITIS
     Dosage: NOT OTHERWISE SPECIFIED
     Route: 042
     Dates: start: 20130927, end: 20130928
  2. ROCEPHINE [Suspect]
     Indication: PANCREATITIS
     Dosage: NOT OTHERWISE SPECIFIED
     Route: 042
     Dates: start: 20130927, end: 20130927
  3. OFLOCET [Concomitant]
  4. AUGMENTIN [Concomitant]

REACTIONS (2)
  - Acute generalised exanthematous pustulosis [None]
  - Toxic skin eruption [None]
